FAERS Safety Report 14031157 (Version 1)
Quarter: 2017Q4

REPORT INFORMATION
  Report Type: Spontaneous
  Country: US (occurrence: US)
  Receive Date: 20171002
  Receipt Date: 20171002
  Transmission Date: 20180321
  Serious: No
  Sender: FDA-Public Use
  Company Number: US-GLAXOSMITHKLINE-US2017GSK150331

PATIENT
  Age: 67 Year
  Sex: Male

DRUGS (6)
  1. PREDNISONE. [Concomitant]
     Active Substance: PREDNISONE
  2. GABAPENTIN. [Concomitant]
     Active Substance: GABAPENTIN
  3. FLOVENT [Suspect]
     Active Substance: FLUTICASONE PROPIONATE
     Indication: PRODUCT USED FOR UNKNOWN INDICATION
     Dosage: 2 PUFF(S), UNK
  4. ATORVASTATIN CALCIUM. [Concomitant]
     Active Substance: ATORVASTATIN CALCIUM
  5. OMEPRAZOLE. [Concomitant]
     Active Substance: OMEPRAZOLE
  6. PROCET [Concomitant]
     Active Substance: ACETAMINOPHEN\HYDROCODONE BITARTRATE

REACTIONS (2)
  - Gastrooesophageal reflux disease [Unknown]
  - Dyspepsia [Unknown]
